FAERS Safety Report 5094162-3 (Version None)
Quarter: 2006Q3

REPORT INFORMATION
  Report Type: 
  Country: None (occurrence: None)
  Receive Date: 20060829
  Receipt Date: 20060816
  Transmission Date: 20061208
  Serious: Yes (Other)
  Sender: FDA-Public Use
  Company Number: HQWYE112121DEC05

PATIENT
  Age: 58 Year
  Sex: Male

DRUGS (4)
  1. PANTOPRAZOLE SODIUM [Suspect]
     Indication: DUODENITIS
     Dosage: SEE IMAGE
     Route: 048
     Dates: end: 20050901
  2. PANTOPRAZOLE SODIUM [Suspect]
     Indication: GASTRITIS
     Dosage: SEE IMAGE
     Route: 048
     Dates: end: 20050901
  3. PANTOPRAZOLE SODIUM [Suspect]
     Indication: DUODENITIS
     Dosage: SEE IMAGE
     Route: 048
     Dates: start: 20031209
  4. PANTOPRAZOLE SODIUM [Suspect]
     Indication: GASTRITIS
     Dosage: SEE IMAGE
     Route: 048
     Dates: start: 20031209

REACTIONS (4)
  - GLIOSIS [None]
  - VISION BLURRED [None]
  - VISUAL ACUITY REDUCED [None]
  - VISUAL DISTURBANCE [None]
